FAERS Safety Report 25797553 (Version 1)
Quarter: 2025Q3

REPORT INFORMATION
  Report Type: Report from Study
  Country: BR (occurrence: BR)
  Receive Date: 20250912
  Receipt Date: 20250912
  Transmission Date: 20251021
  Serious: Yes (Other)
  Sender: JOHNSON AND JOHNSON
  Company Number: BR-JNJFOC-20250906893

PATIENT
  Age: 55 Year
  Sex: Female
  Weight: 54 kg

DRUGS (2)
  1. GOLIMUMAB [Suspect]
     Active Substance: GOLIMUMAB
     Indication: Rheumatoid arthritis
     Dates: end: 20250610
  2. GOLIMUMAB [Suspect]
     Active Substance: GOLIMUMAB

REACTIONS (8)
  - Syncope [Unknown]
  - Aortic arteriosclerosis [Unknown]
  - Heart valve incompetence [Unknown]
  - Diarrhoea [Unknown]
  - Arteriosclerosis [Unknown]
  - Influenza [Unknown]
  - Pain [Unknown]
  - Bradycardia [Unknown]
